FAERS Safety Report 7473865-7 (Version None)
Quarter: 2011Q2

REPORT INFORMATION
  Report Type: 
  Country: None (occurrence: None)
  Receive Date: 20110511
  Receipt Date: 20110504
  Transmission Date: 20111010
  Serious: Yes (Hospitalization)
  Sender: FDA-Public Use
  Company Number: US-BAXTER-2011BH014449

PATIENT
  Age: 67 Year
  Sex: Female

DRUGS (2)
  1. PROPAFENONE [Concomitant]
     Indication: HEART RATE
     Route: 048
  2. DIANEAL [Suspect]
     Indication: PERITONEAL DIALYSIS
     Route: 033
     Dates: start: 20070101

REACTIONS (3)
  - BLOOD GLUCOSE DECREASED [None]
  - HEART RATE INCREASED [None]
  - BLOOD POTASSIUM INCREASED [None]
